FAERS Safety Report 8455338-8 (Version None)
Quarter: 2012Q2

REPORT INFORMATION
  Report Type: 
  Country: None (occurrence: None)
  Receive Date: 20120621
  Receipt Date: 20120618
  Transmission Date: 20120825
  Serious: Yes (Hospitalization, Other)
  Sender: FDA-Public Use
  Company Number: US-PFIZER INC-2012146989

PATIENT
  Sex: Female
  Weight: 77.098 kg

DRUGS (8)
  1. REVATIO [Suspect]
     Indication: PULMONARY HYPERTENSION
     Dosage: 80 MG, 3X/DAY
     Route: 048
     Dates: start: 20110901
  2. FUROSEMIDE [Concomitant]
     Dosage: 40 MG, 1X/DAY
  3. OMEPRAZOLE [Concomitant]
     Dosage: 20 MG, 1X/DAY
  4. TYVASO [Concomitant]
     Dosage: UNK, 3X/DAY
  5. RIFAXIMIN [Concomitant]
     Dosage: 50 MG, 2X/DAY
  6. LACTULOSE [Concomitant]
     Dosage: UNK
  7. ALDACTONE [Concomitant]
     Dosage: 50 MG, 2X/DAY
  8. NADOLOL [Concomitant]
     Dosage: 40 MG, UNK

REACTIONS (2)
  - FLUID RETENTION [None]
  - DEHYDRATION [None]
